FAERS Safety Report 5829142-0 (Version None)
Quarter: 2008Q3

REPORT INFORMATION
  Report Type: 
  Country: None (occurrence: None)
  Receive Date: 20080731
  Receipt Date: 20080721
  Transmission Date: 20090109
  Serious: Yes (Hospitalization, Other)
  Sender: FDA-Public Use
  Company Number: US-WYE-H05175808

PATIENT
  Sex: Female
  Weight: 50.85 kg

DRUGS (6)
  1. PRISTIQ [Suspect]
     Indication: DEPRESSION
     Route: 048
     Dates: start: 20080714, end: 20080718
  2. PRISTIQ [Suspect]
     Indication: POST-TRAUMATIC STRESS DISORDER
  3. SPIRIVA [Concomitant]
     Indication: CHRONIC OBSTRUCTIVE PULMONARY DISEASE
     Dosage: UNKNOWN DOSE AS NEEDED
     Route: 065
  4. BLACK COHOSH [Concomitant]
     Indication: NIGHT SWEATS
     Dosage: UNKNOWN
     Route: 065
  5. XANAX [Concomitant]
     Indication: ANXIETY
     Dosage: UNKNOWN
     Route: 065
  6. TOPROL-XL [Concomitant]
     Indication: TACHYCARDIA
     Dosage: UNKNOWN
     Route: 065

REACTIONS (15)
  - ANXIETY [None]
  - ASTHENIA [None]
  - CHEST PAIN [None]
  - DYSPHAGIA [None]
  - DYSPNOEA [None]
  - FUNGAL INFECTION [None]
  - GASTROOESOPHAGEAL REFLUX DISEASE [None]
  - HEART RATE INCREASED [None]
  - HIATUS HERNIA [None]
  - MALAISE [None]
  - NEPHROLITHIASIS [None]
  - PALPITATIONS [None]
  - PANIC ATTACK [None]
  - PHARYNGEAL OEDEMA [None]
  - THROAT TIGHTNESS [None]
